FAERS Safety Report 8935988 (Version 1)
Quarter: 2012Q4

REPORT INFORMATION
  Report Type: 
  Country: US (occurrence: US)
  Receive Date: 20121130
  Receipt Date: 20121130
  Transmission Date: 20130627
  Serious: No
  Sender: FDA-Public Use
  Company Number: US-ABBOTT-12P-163-0989080-00

PATIENT
  Age: 77 Year
  Sex: Male

DRUGS (3)
  1. ANDROGEL [Suspect]
     Indication: BLOOD TESTOSTERONE DECREASED
     Dosage: 2 pumps
     Route: 061
     Dates: start: 201208
  2. SYNTHROID [Concomitant]
     Indication: HYPOTHYROIDISM
     Dosage: Unknown
  3. ATENOLOL [Concomitant]
     Indication: HYPERTENSION
     Dosage: Unknown

REACTIONS (1)
  - Breast discomfort [Not Recovered/Not Resolved]
